FAERS Safety Report 18757085 (Version 1)
Quarter: 2021Q1

REPORT INFORMATION
  Report Type: Report from Study
  Country: CA (occurrence: CA)
  Receive Date: 20210119
  Receipt Date: 20210119
  Transmission Date: 20210419
  Serious: Yes (Death, Other)
  Sender: FDA-Public Use
  Company Number: PHHY2019CA121741

PATIENT
  Age: 58 Year
  Sex: Male

DRUGS (6)
  1. SANDOSTATIN [Suspect]
     Active Substance: OCTREOTIDE ACETATE
     Indication: CARCINOID TUMOUR
     Dosage: 100 UG, BID
     Route: 058
     Dates: start: 20190507
  2. SANDOSTATIN LAR DEPOT [Suspect]
     Active Substance: OCTREOTIDE ACETATE
     Indication: CARCINOID TUMOUR
     Dosage: 20 MG, QMO (EVERY 4 WEEKS)
     Route: 030
     Dates: start: 20190605
  3. SANDOSTATIN LAR DEPOT [Suspect]
     Active Substance: OCTREOTIDE ACETATE
  4. SANDOSTATIN [Suspect]
     Active Substance: OCTREOTIDE ACETATE
  5. SANDOSTATIN [Suspect]
     Active Substance: OCTREOTIDE ACETATE
  6. SANDOSTATIN LAR DEPOT [Suspect]
     Active Substance: OCTREOTIDE ACETATE
     Dosage: 30 MG, QMO (EVERY 4 WEEKS)
     Route: 030
     Dates: start: 20190605

REACTIONS (18)
  - Feeling cold [Unknown]
  - Abdominal pain [Unknown]
  - Abdominal distension [Unknown]
  - Chills [Unknown]
  - Product storage error [Unknown]
  - Feeling hot [Unknown]
  - Dehydration [Unknown]
  - Back pain [Unknown]
  - Fluid retention [Unknown]
  - Decreased appetite [Unknown]
  - Death [Fatal]
  - Pancreatic duct obstruction [Unknown]
  - Piloerection [Unknown]
  - Diarrhoea [Unknown]
  - Metastases to liver [Unknown]
  - Metastasis [Unknown]
  - Heart rate decreased [Unknown]
  - Jaundice [Not Recovered/Not Resolved]

NARRATIVE: CASE EVENT DATE: 20190618
